FAERS Safety Report 11492911 (Version 2)
Quarter: 2015Q3

REPORT INFORMATION
  Report Type: Spontaneous
  Country: JP (occurrence: JP)
  Receive Date: 20150911
  Receipt Date: 20150916
  Transmission Date: 20151125
  Serious: Yes (Death)
  Sender: FDA-Public Use
  Company Number: JP-ASTRAZENECA-2015SE86785

PATIENT
  Age: 44 Year
  Sex: Male
  Weight: 141 kg

DRUGS (7)
  1. FORXIGA [Suspect]
     Active Substance: DAPAGLIFLOZIN
     Indication: DIABETES MELLITUS
     Route: 048
     Dates: start: 20150722, end: 20150904
  2. FORXIGA [Suspect]
     Active Substance: DAPAGLIFLOZIN
     Indication: DIABETES MELLITUS
     Dosage: DOSE UNKNOWN
     Route: 048
     Dates: start: 20150220, end: 20150326
  3. AMLODIN OD [Concomitant]
     Active Substance: AMLODIPINE BESYLATE
  4. METGLUCO [Concomitant]
     Active Substance: METFORMIN HYDROCHLORIDE
  5. MAINTATE [Concomitant]
     Active Substance: BISOPROLOL FUMARATE
  6. TRAZENTA [Concomitant]
     Active Substance: LINAGLIPTIN
  7. AMARYL [Concomitant]
     Active Substance: GLIMEPIRIDE

REACTIONS (2)
  - Acute myocardial infarction [Fatal]
  - Cardio-respiratory arrest [Fatal]

NARRATIVE: CASE EVENT DATE: 20150904
